FAERS Safety Report 9432403 (Version 1)
Quarter: 2013Q3

REPORT INFORMATION
  Report Type: Spontaneous
  Country: FR (occurrence: US)
  Receive Date: 20130729
  Receipt Date: 20130729
  Transmission Date: 20140515
  Serious: Yes (Death)
  Sender: FDA-Public Use
  Company Number: SYM-2013-06952

PATIENT
  Sex: 0

DRUGS (1)
  1. DILTIAZEM HCL [Suspect]
     Indication: ATRIAL FIBRILLATION

REACTIONS (3)
  - Ventricular fibrillation [None]
  - Cardiac arrest [None]
  - Sudden death [None]
